FAERS Safety Report 17381044 (Version 1)
Quarter: 2020Q1

REPORT INFORMATION
  Report Type: Spontaneous
  Country: US (occurrence: US)
  Receive Date: 20200206
  Receipt Date: 20200206
  Transmission Date: 20200409
  Serious: No
  Sender: FDA-Public Use
  Company Number: US-ABBVIE-19K-163-2767279-00

PATIENT
  Age: 63 Year
  Sex: Female
  Weight: 47.67 kg

DRUGS (2)
  1. HUMIRA [Suspect]
     Active Substance: ADALIMUMAB
     Indication: RHEUMATOID ARTHRITIS
     Route: 058
     Dates: start: 2017, end: 201904
  2. PRAVASTATIN. [Suspect]
     Active Substance: PRAVASTATIN
     Indication: BLOOD CHOLESTEROL INCREASED
     Route: 048
     Dates: start: 20180205, end: 2018

REACTIONS (13)
  - Purpura [Recovered/Resolved]
  - Influenza [Recovered/Resolved]
  - Weight decreased [Not Recovered/Not Resolved]
  - Wheezing [Recovered/Resolved]
  - Upper respiratory tract infection [Recovered/Resolved]
  - Incorrect dose administered [Unknown]
  - Urticaria [Recovered/Resolved]
  - Skin ulcer haemorrhage [Not Recovered/Not Resolved]
  - Influenza [Recovered/Resolved]
  - Sinus disorder [Recovered/Resolved]
  - Decreased appetite [Recovering/Resolving]
  - Dyspnoea [Recovering/Resolving]
  - Wrong technique in product usage process [Unknown]

NARRATIVE: CASE EVENT DATE: 201802
